FAERS Safety Report 8378971-0 (Version None)
Quarter: 2012Q2

REPORT INFORMATION
  Report Type: 
  Country: None (occurrence: None)
  Receive Date: 20120523
  Receipt Date: 20120521
  Transmission Date: 20120825
  Serious: No
  Sender: FDA-Public Use
  Company Number: US-PFIZER INC-2012123552

PATIENT
  Sex: Male
  Weight: 74.376 kg

DRUGS (3)
  1. SERTRALINE HYDROCHLORIDE [Suspect]
     Indication: IRRITABLE BOWEL SYNDROME
     Dosage: 50 MG, DAILY
     Route: 048
     Dates: start: 20120101
  2. SERTRALINE HYDROCHLORIDE [Suspect]
     Dosage: TWO 25MG TABLETS , DAILY
     Route: 048
  3. THYROID TAB [Concomitant]
     Indication: AUTOIMMUNE THYROIDITIS
     Dosage: 30 MG, 3X/DAY

REACTIONS (3)
  - NAUSEA [None]
  - CIRCUMSTANCE OR INFORMATION CAPABLE OF LEADING TO MEDICATION ERROR [None]
  - ABDOMINAL DISCOMFORT [None]
